FAERS Safety Report 7922805-2 (Version None)
Quarter: 2011Q4

REPORT INFORMATION
  Report Type: 
  Country: None (occurrence: None)
  Receive Date: 20111117
  Receipt Date: 20110125
  Transmission Date: 20120403
  Serious: No
  Sender: FDA-Public Use
  Company Number: US-AMGEN-USASP2011004488

PATIENT
  Age: 71 Year
  Sex: Female

DRUGS (1)
  1. ENBREL [Suspect]
     Indication: PSORIASIS
     Dosage: 50 MG, 2 TIMES/WK
     Dates: start: 20061001

REACTIONS (6)
  - DRUG INEFFECTIVE [None]
  - COUGH [None]
  - THROAT IRRITATION [None]
  - PSORIASIS [None]
  - BACK PAIN [None]
  - FATIGUE [None]
